FAERS Safety Report 9752540 (Version 2)
Quarter: 2014Q1

REPORT INFORMATION
  Report Type: Report from Study
  Country: CA (occurrence: CA)
  Receive Date: 20131213
  Receipt Date: 20140103
  Transmission Date: 20141002
  Serious: Yes (Other)
  Sender: FDA-Public Use
  Company Number: CA-JNJFOC-20131205354

PATIENT
  Age: 34 Year
  Sex: Female

DRUGS (5)
  1. REMICADE [Suspect]
     Indication: CROHN^S DISEASE
     Route: 042
     Dates: start: 200811
  2. REMICADE [Suspect]
     Indication: CROHN^S DISEASE
     Dosage: STOPPED IN DEC-2013
     Route: 042
     Dates: start: 201012, end: 2013
  3. STELARA [Suspect]
     Indication: CROHN^S DISEASE
     Route: 058
     Dates: start: 20131218
  4. STELARA [Suspect]
     Indication: CROHN^S DISEASE
     Route: 058
     Dates: start: 20131226
  5. METHOTREXATE [Concomitant]
     Route: 065
     Dates: start: 201201

REACTIONS (3)
  - Ileal stenosis [Unknown]
  - Gastrointestinal disorder [Unknown]
  - Drug effect decreased [Unknown]
